FAERS Safety Report 20101042 (Version 1)
Quarter: 2021Q4

REPORT INFORMATION
  Report Type: Spontaneous
  Country: US (occurrence: None)
  Receive Date: 20211122
  Receipt Date: 20211122
  Transmission Date: 20220303
  Serious: Yes (Hospitalization)
  Sender: FDA-Public Use
  Company Number: None

PATIENT
  Age: 66 Year
  Sex: Female
  Weight: 92.7 kg

DRUGS (1)
  1. REGEN-COV [Suspect]
     Active Substance: CASIRIVIMAB\IMDEVIMAB
     Indication: COVID-19
     Dosage: OTHER FREQUENCY : ONCE;?
     Route: 042
     Dates: start: 20211116, end: 20211116

REACTIONS (7)
  - Muscle spasms [None]
  - Nausea [None]
  - Feeling of body temperature change [None]
  - Diarrhoea [None]
  - Urinary incontinence [None]
  - Unresponsive to stimuli [None]
  - Infusion related reaction [None]

NARRATIVE: CASE EVENT DATE: 20211116
